FAERS Safety Report 11379412 (Version 4)
Quarter: 2015Q3

REPORT INFORMATION
  Report Type: Spontaneous
  Country: DE (occurrence: DE)
  Receive Date: 20150814
  Receipt Date: 20150929
  Transmission Date: 20151125
  Serious: Yes (Death, Disabling, Other)
  Sender: FDA-Public Use
  Company Number: DE-BRISTOL-MYERS SQUIBB COMPANY-BMS-2015-052377

PATIENT
  Sex: Female
  Weight: 58 kg

DRUGS (1)
  1. ELIQUIS [Suspect]
     Active Substance: APIXABAN
     Indication: THROMBOSIS PROPHYLAXIS
     Dosage: 5 MG, BID
     Route: 048
     Dates: start: 20150527

REACTIONS (7)
  - Death [Fatal]
  - Decreased appetite [Unknown]
  - Breast cancer [Unknown]
  - Myalgia [Unknown]
  - Chest pain [Unknown]
  - Oesophageal pain [Unknown]
  - Cough [Unknown]
